FAERS Safety Report 8407467-2 (Version None)
Quarter: 2012Q2

REPORT INFORMATION
  Report Type: 
  Country: None (occurrence: None)
  Receive Date: 20120604
  Receipt Date: 20120523
  Transmission Date: 20120825
  Serious: Yes (Hospitalization)
  Sender: FDA-Public Use
  Company Number: US-PFIZER INC-2012125450

PATIENT
  Sex: Male

DRUGS (11)
  1. OMEPRAZOLE [Concomitant]
     Dosage: 20 MG, 3X/DAY
     Dates: start: 20120101
  2. PERCOCET [Concomitant]
     Dosage: 500 MG, AS NEEDED
     Dates: start: 20120101
  3. LY2510924 [Suspect]
     Indication: METASTATIC RENAL CELL CARCINOMA
     Dosage: 20 MG, 1X/DAY
     Route: 058
     Dates: start: 20120420, end: 20120510
  4. MIRALAX [Concomitant]
     Dosage: 17 G, 1X/DAY
     Dates: start: 20120301
  5. HYDROCHLOROTHIAZIDE [Concomitant]
     Dosage: 12.5 MG, 1X/DAY
     Dates: start: 20120101
  6. COLACE [Concomitant]
     Dosage: 100 MG, 2X/DAY
     Dates: start: 20120301
  7. SIMVASTATIN [Concomitant]
     Dosage: 40 MG, QHS
     Dates: start: 20080101
  8. SUNITINIB MALATE [Suspect]
     Indication: METASTATIC RENAL CELL CARCINOMA
     Dosage: 50 MG, 1X/DAY
     Route: 048
     Dates: start: 20120420, end: 20120510
  9. METOCLOPRAMIDE [Concomitant]
     Dosage: 5 MG, 4X/DAY
     Dates: start: 20120101
  10. METOPROLOL [Concomitant]
     Dosage: 25 MG, 1X/DAY
     Dates: start: 20080101
  11. OXYCODONE [Concomitant]
     Dosage: 10 MG, AS NEEDED
     Dates: start: 20120101

REACTIONS (1)
  - MYOCARDIAL INFARCTION [None]
